FAERS Safety Report 9769650 (Version 1)
Quarter: 2013Q4

REPORT INFORMATION
  Report Type: Spontaneous
  Country: US (occurrence: US)
  Receive Date: 20131218
  Receipt Date: 20131218
  Transmission Date: 20140711
  Serious: Yes (Other)
  Sender: FDA-Public Use
  Company Number: CHPA2013US018352

PATIENT
  Age: 66 Year
  Sex: Female

DRUGS (5)
  1. EXCEDRIN EXTRA STRENGTH [Suspect]
     Indication: HEADACHE
     Dosage: 2 DF, PRN
     Route: 048
  2. EXCEDRIN EXTRA STRENGTH [Suspect]
     Indication: INFLAMMATION
  3. EXCEDRIN EXTRA STRENGTH [Suspect]
     Indication: OFF LABEL USE
  4. IBUPROFEN [Concomitant]
     Indication: INFLAMMATION
  5. LEVOTHYROXINE [Concomitant]
     Dosage: UNK
     Dates: start: 1984

REACTIONS (2)
  - Urinary tract infection [Recovered/Resolved]
  - Drug ineffective for unapproved indication [Unknown]
